FAERS Safety Report 18817630 (Version 2)
Quarter: 2021Q1

REPORT INFORMATION
  Report Type: Spontaneous
  Country: US (occurrence: US)
  Receive Date: 20210201
  Receipt Date: 20210331
  Transmission Date: 20210419
  Serious: No
  Sender: FDA-Public Use
  Company Number: US-LUPIN PHARMACEUTICALS INC.-2021-00760

PATIENT
  Age: 32 Year
  Sex: Female

DRUGS (2)
  1. TRIAMCINOLONE [Suspect]
     Active Substance: TRIAMCINOLONE
     Indication: DERMATITIS CONTACT
     Dosage: UNK
     Route: 061
  2. BACITRACIN. [Concomitant]
     Active Substance: BACITRACIN
     Indication: ANTIBIOTIC PROPHYLAXIS
     Dosage: UNK
     Route: 061

REACTIONS (1)
  - Perioral dermatitis [Unknown]
